FAERS Safety Report 9026288 (Version 1)
Quarter: 2013Q1

REPORT INFORMATION
  Report Type: Report from Study
  Country: NL (occurrence: NL)
  Receive Date: 20130123
  Receipt Date: 20130123
  Transmission Date: 20140127
  Serious: Yes (Hospitalization)
  Sender: FDA-Public Use
  Company Number: PHHO2012NL014979

PATIENT
  Sex: Male
  Weight: 69 kg

DRUGS (2)
  1. MYCOPHENOLIC ACID [Suspect]
     Indication: STEM CELL TRANSPLANT
     Dosage: 1080 MG, UNK
     Route: 048
     Dates: start: 20120927
  2. SANDIMMUN [Suspect]
     Indication: STEM CELL TRANSPLANT
     Dosage: 190 MG, UNK
     Route: 042
     Dates: start: 20120923

REACTIONS (5)
  - Diarrhoea [Not Recovered/Not Resolved]
  - Nausea [Not Recovered/Not Resolved]
  - Vomiting [Not Recovered/Not Resolved]
  - Decreased appetite [Not Recovered/Not Resolved]
  - Atypical pneumonia [Not Recovered/Not Resolved]
